FAERS Safety Report 8415494-4 (Version None)
Quarter: 2012Q2

REPORT INFORMATION
  Report Type: 
  Country: None (occurrence: None)
  Receive Date: 20120606
  Receipt Date: 20120604
  Transmission Date: 20120825
  Serious: Yes (Death, Hospitalization, Other)
  Sender: FDA-Public Use
  Company Number: PHHY2011PH95166

PATIENT
  Sex: Male

DRUGS (2)
  1. GLEEVEC [Suspect]
     Dosage: 800 MG, DAILY
     Route: 048
  2. GLEEVEC [Suspect]
     Indication: GASTROINTESTINAL STROMAL TUMOUR
     Dosage: 400 MG, DAILY
     Route: 048
     Dates: start: 20070926

REACTIONS (9)
  - ABASIA [None]
  - ANAL HAEMORRHAGE [None]
  - PAIN [None]
  - NEOPLASM PROGRESSION [None]
  - NEOPLASM MALIGNANT [None]
  - NO THERAPEUTIC RESPONSE [None]
  - DEATH [None]
  - DYSSTASIA [None]
  - OEDEMA [None]
